FAERS Safety Report 4385801-0 (Version None)
Quarter: 2004Q2

REPORT INFORMATION
  Report Type: 
  Country: None (occurrence: None)
  Receive Date: 20040623
  Receipt Date: 20040608
  Transmission Date: 20050107
  Serious: No
  Sender: FDA-Public Use
  Company Number: 04P-167-0263538-00

PATIENT
  Age: 44 Year
  Sex: Male

DRUGS (6)
  1. RITONAVIR SOFT GELATIN CAPSULES (NORVIR) (RITONAVIR) [Suspect]
     Indication: HIV INFECTION
     Dosage: 200 MG, 2 IN 1 D, PER ORAL
     Route: 048
     Dates: start: 20031202, end: 20040419
  2. DIDANOSINE [Concomitant]
  3. TENOFOVIR [Concomitant]
  4. LAMIVUDINE [Concomitant]
  5. BACTRIM [Concomitant]
  6. TIPRANAVIR [Concomitant]

REACTIONS (2)
  - BLOOD HIV RNA INCREASED [None]
  - DRUG INEFFECTIVE [None]
